FAERS Safety Report 19320221 (Version 1)
Quarter: 2021Q2

REPORT INFORMATION
  Report Type: Spontaneous
  Country: CA (occurrence: CA)
  Receive Date: 20210528
  Receipt Date: 20210528
  Transmission Date: 20210717
  Serious: No
  Sender: FDA-Public Use
  Company Number: None

PATIENT
  Age: 5 Year
  Sex: Female
  Weight: 17.3 kg

DRUGS (2)
  1. RESTORALAX [Suspect]
     Active Substance: POLYETHYLENE GLYCOL 3350
     Indication: CONSTIPATION
     Dosage: ?          QUANTITY:0.5 12G;?
     Route: 048
  2. VITAMIN D DROPS [Concomitant]

REACTIONS (4)
  - Aggression [None]
  - Constipation [None]
  - Anger [None]
  - Behaviour disorder [None]

NARRATIVE: CASE EVENT DATE: 20210104
